FAERS Safety Report 17423206 (Version 1)
Quarter: 2020Q1

REPORT INFORMATION
  Report Type: Spontaneous
  Country: US (occurrence: US)
  Receive Date: 20200131
  Receipt Date: 20200131
  Transmission Date: 20200409
  Serious: No
  Sender: FDA-Public Use
  Company Number: None

PATIENT
  Age: 28 Year
  Sex: Male

DRUGS (1)
  1. MAVYRET [Suspect]
     Active Substance: GLECAPREVIR\PIBRENTASVIR
     Indication: HEPATITIS C
     Dosage: 100-40MG TABSX3 TABS DAILY ORAL
     Route: 048
     Dates: start: 201912

REACTIONS (4)
  - Fatigue [None]
  - Abdominal pain upper [None]
  - Nausea [None]
  - Wrong schedule [None]

NARRATIVE: CASE EVENT DATE: 20200131
